FAERS Safety Report 18062582 (Version 2)
Quarter: 2021Q4

REPORT INFORMATION
  Report Type: Spontaneous
  Country: PT (occurrence: PT)
  Receive Date: 20200723
  Receipt Date: 20211018
  Transmission Date: 20220303
  Serious: Yes (Hospitalization, Other)
  Sender: FDA-Public Use
  Company Number: PT-MYLANLABS-2019M1102439

PATIENT
  Age: 72 Year
  Sex: Male

DRUGS (5)
  1. VORICONAZOLE [Interacting]
     Active Substance: VORICONAZOLE
     Indication: Keratitis fungal
     Dosage: UNK
     Route: 065
  2. VORICONAZOLE [Interacting]
     Active Substance: VORICONAZOLE
     Indication: Antifungal treatment
     Dosage: UNK
  3. VORICONAZOLE [Interacting]
     Active Substance: VORICONAZOLE
     Dosage: UNK
  4. POSACONAZOLE [Interacting]
     Active Substance: POSACONAZOLE
     Indication: Keratitis fungal
     Dosage: UNK
     Route: 048
  5. POSACONAZOLE [Interacting]
     Active Substance: POSACONAZOLE
     Dosage: UNK
     Route: 065

REACTIONS (4)
  - Hepatitis toxic [Recovered/Resolved]
  - Toxic encephalopathy [Recovering/Resolving]
  - Drug interaction [Unknown]
  - Product use in unapproved indication [Unknown]
